FAERS Safety Report 14780229 (Version 3)
Quarter: 2018Q2

REPORT INFORMATION
  Report Type: Report from Study
  Country: CN (occurrence: CN)
  Receive Date: 20180419
  Receipt Date: 20180530
  Transmission Date: 20180711
  Serious: Yes (Hospitalization)
  Sender: FDA-Public Use
  Company Number: CN-AMGEN-CHNCT2018052499

PATIENT
  Age: 51 Year
  Sex: Female
  Weight: 53.5 kg

DRUGS (21)
  1. MECOBALAMIN [Concomitant]
     Active Substance: METHYLCOBALAMIN
     Dosage: 500 MUG, UNK
     Route: 042
     Dates: start: 20180402, end: 20180420
  2. POTASSIUM CHLORIDE. [Concomitant]
     Active Substance: POTASSIUM CHLORIDE
     Dosage: 1 G, UNK
     Route: 042
     Dates: start: 20180327, end: 20180418
  3. METRONIDAZOLE. [Concomitant]
     Active Substance: METRONIDAZOLE
     Dosage: 10 ML, UNK
     Route: 050
     Dates: start: 20180328
  4. SODIUM CHLORIDE. [Concomitant]
     Active Substance: SODIUM CHLORIDE
     Dosage: 250 ML, UNK
     Route: 042
     Dates: start: 20180328, end: 20180410
  5. VITAMIN C [Concomitant]
     Active Substance: ASCORBIC ACID
     Dosage: 3 G, UNK
     Route: 042
     Dates: start: 20180327, end: 20180413
  6. SODIUM BICARBONATE. [Concomitant]
     Active Substance: SODIUM BICARBONATE
     Dosage: 150 ML, UNK
     Route: 042
     Dates: start: 20180327, end: 20180413
  7. CREATINE PHOSPHATE SODIUM [Concomitant]
     Active Substance: CREATINE
     Dosage: 1 G, UNK
     Route: 042
     Dates: start: 20180327, end: 20180403
  8. OMEPRAZOLE. [Concomitant]
     Active Substance: OMEPRAZOLE
     Dosage: 20 MG, UNK
     Route: 048
     Dates: start: 20180403, end: 20180411
  9. METOCLOPRAMIDE. [Concomitant]
     Active Substance: METOCLOPRAMIDE
     Dosage: 5 MG, UNK
     Route: 048
     Dates: start: 20180414, end: 20180420
  10. GLUCOSE W/SODIUM CHLORIDE [Concomitant]
     Dosage: 500 ML, UNK
     Route: 042
     Dates: start: 20180327, end: 20180413
  11. ACICLOVIR [Concomitant]
     Active Substance: ACYCLOVIR
     Dosage: 800 MG, UNK
     Route: 048
     Dates: start: 20180326, end: 20180418
  12. TROPISETRON [Concomitant]
     Active Substance: TROPISETRON
     Dosage: 5 MUG TO 5 MG, UNK
     Route: 042
     Dates: start: 20180402, end: 20180419
  13. DIISOPROPYLAMINE DICHLOROACETATE [Concomitant]
     Dosage: 80 MG, UNK
     Route: 042
     Dates: start: 20180327, end: 20180420
  14. CALCIUM CARBONATE/VITAMIN D3 [Concomitant]
     Active Substance: CALCIUM CARBONATE\CHOLECALCIFEROL
     Dosage: 1200 MG, UNK
     Route: 048
     Dates: start: 20180403, end: 20180420
  15. LIDOCAINE. [Concomitant]
     Active Substance: LIDOCAINE
     Dosage: 5 ML, UNK
     Route: 030
     Dates: start: 20180326, end: 20180416
  16. MANNITOL. [Concomitant]
     Active Substance: MANNITOL
     Dosage: 25 G, UNK
     Route: 042
     Dates: start: 20180408, end: 20180418
  17. PALONOSETRON. [Concomitant]
     Active Substance: PALONOSETRON HYDROCHLORIDE
     Dosage: 0.25 MUG-0.25 MG, UNK
     Route: 042
     Dates: start: 20180409, end: 20180419
  18. CARFILZOMIB [Suspect]
     Active Substance: CARFILZOMIB
     Indication: PLASMA CELL MYELOMA
     Dosage: 43 MG, PER CHEMO REGIM
     Route: 042
     Dates: start: 20180328, end: 20180410
  19. DEXAMETHASONE. [Suspect]
     Active Substance: DEXAMETHASONE
     Indication: PLASMA CELL MYELOMA
     Dosage: 20 MG, PER CHEMO REGIM
     Route: 042
     Dates: start: 20180328, end: 20180410
  20. AMINO ACIDS NOS W/FATS NOS/GLUCOSE [Concomitant]
     Dosage: 1440 ML, UNK
     Route: 042
     Dates: start: 20180409, end: 20180420
  21. OMEPRAZOLE SODIUM [Concomitant]
     Active Substance: OMEPRAZOLE SODIUM
     Dosage: 40 MG, UNK
     Route: 042
     Dates: start: 20180414, end: 20180420

REACTIONS (1)
  - Soft tissue infection [Recovered/Resolved]

NARRATIVE: CASE EVENT DATE: 20180416
